FAERS Safety Report 10143008 (Version 2)
Quarter: 2014Q2

REPORT INFORMATION
  Report Type: Spontaneous
  Country: CN (occurrence: CN)
  Receive Date: 20140430
  Receipt Date: 20140604
  Transmission Date: 20141212
  Serious: Yes (Life-Threatening, Hospitalization)
  Sender: FDA-Public Use
  Company Number: CN-SA-2014SA049692

PATIENT
  Age: 50 Year
  Sex: Male

DRUGS (1)
  1. LANTUS [Suspect]
     Indication: DIABETES MELLITUS
     Route: 058
     Dates: start: 2012

REACTIONS (9)
  - Coma [Recovered/Resolved]
  - Suspected counterfeit product [Unknown]
  - Blood glucose increased [Recovered/Resolved]
  - Muscular weakness [Recovered/Resolved]
  - Alopecia [Recovered/Resolved]
  - Sweat gland disorder [Recovered/Resolved]
  - Asthenia [Recovered/Resolved]
  - Insomnia [Recovered/Resolved]
  - Rash [Recovered/Resolved]
